FAERS Safety Report 8177402-3 (Version None)
Quarter: 2012Q1

REPORT INFORMATION
  Report Type: 
  Country: None (occurrence: None)
  Receive Date: 20120301
  Receipt Date: 20120223
  Transmission Date: 20120608
  Serious: Yes (Other)
  Sender: FDA-Public Use
  Company Number: AU-ROCHE-1044513

PATIENT
  Sex: Female

DRUGS (2)
  1. LUCENTIS [Suspect]
     Indication: AGE-RELATED MACULAR DEGENERATION
     Route: 050
     Dates: start: 20110601, end: 20110901
  2. LUCENTIS [Suspect]
     Route: 050
     Dates: start: 20110901

REACTIONS (2)
  - COLITIS MICROSCOPIC [None]
  - RETINAL SCAR [None]
